FAERS Safety Report 8896476 (Version 1)
Quarter: 2012Q4

REPORT INFORMATION
  Report Type: Spontaneous
  Country: US (occurrence: None)
  Receive Date: 20121107
  Receipt Date: 20121107
  Transmission Date: 20130627
  Serious: Yes (Other)
  Sender: FDA-Public Use
  Company Number: None

PATIENT
  Age: 63 Year
  Sex: Male
  Weight: 83.01 kg

DRUGS (10)
  1. PACLITAXEL [Suspect]
     Indication: NON-SMALL CELL LUNG CANCER
     Dosage: 200 mg/m2 = 394 mg  once every 21 days  IV Drip
     Route: 041
     Dates: start: 20121011, end: 20121011
  2. MORPHINE [Concomitant]
  3. ATIVAN [Concomitant]
  4. ONDANSETRON [Concomitant]
  5. VELIPARIB/PLACEBO [Concomitant]
  6. PARAPLATIN [Concomitant]
  7. BENADRYL [Concomitant]
  8. RANITIDINE [Concomitant]
  9. DECADRON [Concomitant]
  10. PALONOSETRON [Concomitant]

REACTIONS (3)
  - Toxicity to various agents [None]
  - Dysuria [None]
  - Penis disorder [None]
